FAERS Safety Report 4770997-9 (Version None)
Quarter: 2005Q3

REPORT INFORMATION
  Report Type: 
  Country: None (occurrence: None)
  Receive Date: 20050915
  Receipt Date: 20050705
  Transmission Date: 20060218
  Serious: Yes (Hospitalization, Other)
  Sender: FDA-Public Use
  Company Number: PHNU2005DE02454

PATIENT
  Age: 60 Year
  Sex: Female
  Weight: 70 kg

DRUGS (4)
  1. CRANOC (LICENSED, FUJISAWA DEUTSCHLAND) [Suspect]
     Indication: HYPERCHOLESTEROLAEMIA
     Dosage: 1 DF, ONCE/SINGLE
     Route: 048
     Dates: start: 20050618, end: 20050618
  2. CRANOC (LICENSED, FUJISAWA DEUTSCHLAND) [Suspect]
     Dosage: 1 DF, ONCE/SINGLE
     Route: 048
     Dates: start: 20050201, end: 20050201
  3. ENALAPRIL [Concomitant]
     Indication: HYPERTENSION
     Dosage: 1 DF, QD
     Route: 048
     Dates: start: 20050201
  4. AMLODIPINE [Concomitant]
     Indication: HYPERTENSION
     Dosage: 1 DF, QD
     Route: 048
     Dates: start: 20050201

REACTIONS (15)
  - ABDOMINAL PAIN UPPER [None]
  - BLOOD ALKALINE PHOSPHATASE INCREASED [None]
  - CHOLECYSTECTOMY [None]
  - CHOLELITHIASIS [None]
  - CHOLESTASIS [None]
  - DIZZINESS [None]
  - GALLBLADDER OBSTRUCTION [None]
  - HYPERHIDROSIS [None]
  - JAUNDICE [None]
  - LIVER FUNCTION TEST ABNORMAL [None]
  - NAUSEA [None]
  - PANCREATITIS [None]
  - PLATELET COUNT INCREASED [None]
  - RED BLOOD CELL SEDIMENTATION RATE INCREASED [None]
  - VOMITING [None]
